FAERS Safety Report 7760019-X (Version None)
Quarter: 2011Q3

REPORT INFORMATION
  Report Type: 
  Country: None (occurrence: None)
  Receive Date: 20110919
  Receipt Date: 20110908
  Transmission Date: 20111222
  Serious: Yes (Hospitalization, Other)
  Sender: FDA-Public Use
  Company Number: US-BAYER-201026897NA

PATIENT
  Age: 18 Year
  Sex: Female
  Weight: 55.329 kg

DRUGS (9)
  1. YASMIN [Suspect]
     Dosage: UNK, QD
     Route: 048
     Dates: start: 20090601, end: 20090901
  2. DROSPIRENONE AND ETHINYL ESTRADIOL [Suspect]
     Indication: ACNE
     Dosage: UNK UNK, QD
     Route: 048
     Dates: start: 20080801, end: 20080901
  3. GLYCOPYRROLATE [Concomitant]
     Indication: HYPERHIDROSIS
     Dosage: UNK UNK, UNK
     Dates: start: 20080725, end: 20090611
  4. DROSPIRENONE AND ETHINYL ESTRADIOL [Suspect]
     Dosage: UNK, QD
     Route: 048
     Dates: start: 20090601, end: 20090901
  5. YASMIN [Suspect]
     Indication: ACNE
     Dosage: UNK UNK, QD
     Route: 048
     Dates: start: 20080801, end: 20080901
  6. YAZ [Suspect]
     Dosage: UNK, QD
     Route: 048
     Dates: start: 20090601, end: 20090901
  7. DUAC [Concomitant]
     Indication: ACNE
     Dosage: UNK UNK, UNK
     Route: 061
  8. YAZ [Suspect]
     Indication: ACNE
     Dosage: UNK UNK, QD
     Route: 048
     Dates: start: 20080901, end: 20090601
  9. DORYX [Concomitant]
     Indication: ACNE
     Dosage: UNK UNK, UNK
     Dates: start: 20081028, end: 20090626

REACTIONS (8)
  - GALLBLADDER DISORDER [None]
  - WEIGHT DECREASED [None]
  - DYSPEPSIA [None]
  - CHOLECYSTITIS CHRONIC [None]
  - DISTURBANCE IN ATTENTION [None]
  - ABDOMINAL PAIN UPPER [None]
  - NAUSEA [None]
  - DEPRESSED MOOD [None]
